FAERS Safety Report 8283061-1 (Version None)
Quarter: 2012Q2

REPORT INFORMATION
  Report Type: 
  Country: None (occurrence: None)
  Receive Date: 20120413
  Receipt Date: 20120404
  Transmission Date: 20120825
  Serious: Yes (Other)
  Sender: FDA-Public Use
  Company Number: GB-ASTRAZENECA-2012SE22267

PATIENT
  Age: 69 Year
  Sex: Male

DRUGS (5)
  1. ATORVASTATIN [Concomitant]
  2. LISINOPRIL [Suspect]
     Indication: HYPERTENSION
     Route: 048
     Dates: start: 20120127
  3. ATENOLOL [Concomitant]
     Indication: BLOOD PRESSURE
  4. LEVOTHYROXINE SODIUM [Concomitant]
  5. LITHIUM CARBONATE [Concomitant]

REACTIONS (5)
  - HEADACHE [None]
  - UPPER-AIRWAY COUGH SYNDROME [None]
  - LEUKOCYTOSIS [None]
  - SINUSITIS [None]
  - OCULAR HYPERAEMIA [None]
